FAERS Safety Report 12314247 (Version 1)
Quarter: 2016Q2

REPORT INFORMATION
  Report Type: Spontaneous
  Country: US (occurrence: None)
  Receive Date: 20160427
  Receipt Date: 20160427
  Transmission Date: 20160815
  Serious: Yes (Other)
  Sender: FDA-Public Use
  Company Number: None

PATIENT
  Age: 78 Year
  Sex: Male
  Weight: 102.1 kg

DRUGS (11)
  1. TRIAMTERENE-HYDROCHLOROTHIAZIDE (DYAZIDE) [Concomitant]
  2. LISINOPRIL (ZESTRIL) [Concomitant]
  3. ROSUVASTATIN (CRESTOR) [Concomitant]
  4. AMITRIPTYLINE, 25 MG [Suspect]
     Active Substance: AMITRIPTYLINE
     Indication: PERIPHERAL VASCULAR DISORDER
     Route: 048
     Dates: start: 20111201, end: 20160426
  5. BETA-CAROTENE (OCUVITE ORAL) [Concomitant]
  6. ASPIRIN. [Concomitant]
     Active Substance: ASPIRIN
  7. DOXAZOSIN (CARDURA) [Concomitant]
  8. RANITIDINE (ZANTAC) [Concomitant]
  9. PROSCAR [Concomitant]
     Active Substance: FINASTERIDE
  10. NEURONTIN [Concomitant]
     Active Substance: GABAPENTIN
  11. ACETAMINOPHEN\HYDROCODONE BITARTRATE [Concomitant]
     Active Substance: ACETAMINOPHEN\HYDROCODONE BITARTRATE

REACTIONS (2)
  - Dizziness [None]
  - Blood glucose decreased [None]

NARRATIVE: CASE EVENT DATE: 20160412
